FAERS Safety Report 4925692-X (Version None)
Quarter: 2006Q1

REPORT INFORMATION
  Report Type: 
  Country: None (occurrence: None)
  Receive Date: 20060228
  Receipt Date: 20050124
  Transmission Date: 20060701
  Serious: No
  Sender: FDA-Public Use
  Company Number: US-GLAXOSMITHKLINE-A0542050A

PATIENT
  Age: 10 Year
  Sex: Female

DRUGS (1)
  1. LAMICTAL [Suspect]
     Dosage: 450MG SEE DOSAGE TEXT
     Route: 048
     Dates: start: 20010101

REACTIONS (1)
  - INITIAL INSOMNIA [None]
